FAERS Safety Report 4829940-6 (Version None)
Quarter: 2005Q4

REPORT INFORMATION
  Report Type: 
  Country: None (occurrence: None)
  Receive Date: 20051115
  Receipt Date: 20051115
  Transmission Date: 20060501
  Serious: Yes (Hospitalization)
  Sender: FDA-Public Use
  Company Number: None

PATIENT
  Age: 61 Year
  Sex: Male
  Weight: 84 kg

DRUGS (13)
  1. HYDROCHLOROTHIAZIDE [Suspect]
     Indication: HYPERTENSION
     Dosage: 25 MG PO DAILY
     Route: 048
     Dates: start: 20050209, end: 20050708
  2. TYLENOL (CAPLET) [Concomitant]
  3. ASPIRIN [Concomitant]
  4. COLACE [Concomitant]
  5. FLUCONAZOLE [Concomitant]
  6. FOLIC ACID [Concomitant]
  7. FOSINOPRIL [Concomitant]
  8. METOPROLOL [Concomitant]
  9. CILOSTAZOL [Concomitant]
  10. SIMVASTATIN [Concomitant]
  11. GLYBURIDE [Concomitant]
  12. VIAGRA [Concomitant]
  13. PREDNISONE [Concomitant]

REACTIONS (1)
  - HYPONATRAEMIA [None]
